FAERS Safety Report 9406291 (Version 1)
Quarter: 2013Q3

REPORT INFORMATION
  Report Type: Spontaneous
  Country: US (occurrence: US)
  Receive Date: 20130717
  Receipt Date: 20130717
  Transmission Date: 20140515
  Serious: Yes (Hospitalization)
  Sender: FDA-Public Use
  Company Number: US-SANOFI-AVENTIS-2013SA069550

PATIENT
  Age: 41 Year
  Sex: Female

DRUGS (2)
  1. LOVENOX [Suspect]
     Indication: PULMONARY EMBOLISM
     Route: 058
  2. ENOXAPARIN SODIUM - WINTHROP [Suspect]
     Route: 065

REACTIONS (6)
  - Bipolar disorder [Unknown]
  - Hypersomnia [Recovered/Resolved]
  - Malaise [Unknown]
  - Weight decreased [Unknown]
  - Injection site bruising [Unknown]
  - Drug administration error [Unknown]
